FAERS Safety Report 5525206-X (Version None)
Quarter: 2007Q4

REPORT INFORMATION
  Report Type: 
  Country: None (occurrence: None)
  Receive Date: 20071126
  Receipt Date: 20071121
  Transmission Date: 20080405
  Serious: Yes (Death)
  Sender: FDA-Public Use
  Company Number: JP-BRISTOL-MYERS SQUIBB COMPANY-13991716

PATIENT
  Sex: Male

DRUGS (3)
  1. TAXOL [Suspect]
     Indication: TRANSITIONAL CELL CARCINOMA
     Route: 041
  2. CISPLATIN [Suspect]
     Indication: TRANSITIONAL CELL CARCINOMA
     Route: 041
  3. GEMZAR [Concomitant]
     Indication: TRANSITIONAL CELL CARCINOMA
     Route: 042

REACTIONS (1)
  - DEATH [None]
